FAERS Safety Report 7550724-2 (Version None)
Quarter: 2011Q2

REPORT INFORMATION
  Report Type: 
  Country: None (occurrence: None)
  Receive Date: 20110609
  Receipt Date: 20110527
  Transmission Date: 20111010
  Serious: Yes (Hospitalization)
  Sender: FDA-Public Use
  Company Number: UTC-007506

PATIENT
  Age: 70 Year
  Sex: Male

DRUGS (4)
  1. COUMADIN [Concomitant]
  2. DIURETICS (DIURETICS) [Concomitant]
  3. TYVASO [Suspect]
     Indication: PULMONARY ARTERIAL HYPERTENSION
     Dosage: 18-72 MICROGRAM (4 IN 1 D), INHALATION
     Route: 055
     Dates: start: 20110124
  4. ADCIRCA [Concomitant]

REACTIONS (1)
  - CHEST PAIN [None]
